FAERS Safety Report 5648419-5 (Version None)
Quarter: 2008Q1

REPORT INFORMATION
  Report Type: 
  Country: None (occurrence: None)
  Receive Date: 20080303
  Receipt Date: 20080303
  Transmission Date: 20080703
  Serious: Yes (Hospitalization)
  Sender: FDA-Public Use
  Company Number: None

PATIENT
  Age: 59 Year
  Sex: Male

DRUGS (2)
  1. FOSPHENYTOIN [Suspect]
     Indication: CONVULSION
     Dosage: 1.4 GM ONCE IV
     Route: 042
     Dates: start: 20071114, end: 20071114
  2. FOSPHENYTOIN [Suspect]

REACTIONS (5)
  - CONFUSIONAL STATE [None]
  - LETHARGY [None]
  - MENTAL STATUS CHANGES [None]
  - NYSTAGMUS [None]
  - SEDATION [None]
